FAERS Safety Report 25061809 (Version 5)
Quarter: 2025Q2

REPORT INFORMATION
  Report Type: Spontaneous
  Country: CA (occurrence: CA)
  Receive Date: 20250311
  Receipt Date: 20250510
  Transmission Date: 20250716
  Serious: Yes (Hospitalization, Other)
  Sender: CELLTRION
  Company Number: CA-PFIZER INC-202500050574

PATIENT

DRUGS (17)
  1. INFLECTRA [Suspect]
     Active Substance: INFLIXIMAB-DYYB
     Indication: Crohn^s disease
     Route: 042
     Dates: start: 20250109
  2. INFLECTRA [Suspect]
     Active Substance: INFLIXIMAB-DYYB
     Route: 042
     Dates: start: 20250306
  3. INFLECTRA [Suspect]
     Active Substance: INFLIXIMAB-DYYB
     Route: 042
     Dates: start: 20250501
  4. ACYCLOVIR [Concomitant]
     Active Substance: ACYCLOVIR
  5. BETADERM [Concomitant]
     Active Substance: BETAMETHASONE VALERATE
  6. CIPROFLOXACIN [Concomitant]
     Active Substance: CIPROFLOXACIN
  7. CLOBETASOL [Concomitant]
     Active Substance: CLOBETASOL
  8. DOMPERIDONE [Concomitant]
     Active Substance: DOMPERIDONE
     Route: 048
  9. ESTRONE [Concomitant]
     Active Substance: ESTRONE
  10. MOMETASONE [Concomitant]
     Active Substance: MOMETASONE
  11. NORVASC [Concomitant]
     Active Substance: AMLODIPINE BESYLATE
     Indication: Hypertension
     Route: 048
     Dates: start: 20200706
  12. OLOPATADINE [Concomitant]
     Active Substance: OLOPATADINE
  13. PANTOPRAZOLE [Concomitant]
     Active Substance: PANTOPRAZOLE
     Route: 048
  14. PROTOPIC [Concomitant]
     Active Substance: TACROLIMUS
  15. PROLIA [Concomitant]
     Active Substance: DENOSUMAB
  16. TYLENOL [Concomitant]
     Active Substance: ACETAMINOPHEN
     Indication: Arthritis
     Route: 065
  17. ZOPICLONE [Concomitant]
     Active Substance: ZOPICLONE

REACTIONS (7)
  - Fall [Recovered/Resolved]
  - Chest injury [Recovered/Resolved]
  - Limb injury [Recovered/Resolved]
  - Soft tissue injury [Recovering/Resolving]
  - Condition aggravated [Not Recovered/Not Resolved]
  - Contusion [Unknown]
  - Allodynia [Unknown]

NARRATIVE: CASE EVENT DATE: 20250306
